FAERS Safety Report 24117133 (Version 1)
Quarter: 2024Q3

REPORT INFORMATION
  Report Type: Spontaneous
  Country: CN (occurrence: CN)
  Receive Date: 20240722
  Receipt Date: 20240722
  Transmission Date: 20241016
  Serious: Yes (Hospitalization)
  Sender: BOEHRINGER INGELHEIM
  Company Number: CN-BoehringerIngelheim-2024-BI-040564

PATIENT
  Age: 76 Year
  Sex: Female
  Weight: 55.0 kg

DRUGS (1)
  1. LINAGLIPTIN\METFORMIN HYDROCHLORIDE [Suspect]
     Active Substance: LINAGLIPTIN\METFORMIN HYDROCHLORIDE
     Indication: Diabetes mellitus
     Dosage: UNIT DOSE: 1 DOSAGE FORM
     Route: 048
     Dates: start: 20240708, end: 20240710

REACTIONS (3)
  - Abdominal distension [Recovering/Resolving]
  - Hiccups [Recovering/Resolving]
  - Vomiting [Recovering/Resolving]

NARRATIVE: CASE EVENT DATE: 20240710
